FAERS Safety Report 6835287-9 (Version None)
Quarter: 2010Q3

REPORT INFORMATION
  Report Type: 
  Country: None (occurrence: None)
  Receive Date: 20100713
  Receipt Date: 20070404
  Transmission Date: 20110219
  Serious: No
  Sender: FDA-Public Use
  Company Number: US-PFIZER INC-2007028017

PATIENT
  Age: 69 Year
  Sex: Female
  Weight: 70.76 kg

DRUGS (13)
  1. CHANTIX [Suspect]
     Indication: SMOKING CESSATION THERAPY
     Dates: start: 20070101, end: 20070301
  2. MACROGOL [Suspect]
     Indication: CONSTIPATION
     Dates: start: 20070101
  3. GALENIC /DOCUSATE/SENNA/ [Concomitant]
     Dates: start: 20070101
  4. LEVOTHYROXINE [Concomitant]
  5. ALPRAZOLAM [Concomitant]
  6. NAPROXEN [Concomitant]
     Indication: PAIN
  7. ASPIRIN [Concomitant]
  8. GARLIC [Concomitant]
  9. ZINC [Concomitant]
  10. MANGANESE [Concomitant]
  11. VITAMIN B COMPLEX CAP [Concomitant]
  12. VITAMIN C AND E [Concomitant]
  13. FISH OIL [Concomitant]

REACTIONS (1)
  - PAIN IN EXTREMITY [None]
